FAERS Safety Report 8203701-2 (Version None)
Quarter: 2012Q1

REPORT INFORMATION
  Report Type: 
  Country: None (occurrence: None)
  Receive Date: 20120308
  Receipt Date: 20120229
  Transmission Date: 20120608
  Serious: Yes (Hospitalization)
  Sender: FDA-Public Use
  Company Number: 2012AP000556

PATIENT
  Age: 61 Year
  Sex: Male

DRUGS (10)
  1. OMEPRAZOLE [Suspect]
     Indication: DUODENAL ULCER HAEMORRHAGE
     Dates: start: 20120203, end: 20120208
  2. METHOTREXATE [Concomitant]
  3. PROPRANOLOL [Concomitant]
  4. PERINDOPRIL ERBUMINE [Concomitant]
  5. LANSOPRAZOLE [Concomitant]
  6. LEFLUNOMIDE [Suspect]
     Indication: RHEUMATOID ARTHRITIS
     Dosage: 20 MG;   ;PO;QD
     Route: 048
     Dates: start: 20110901, end: 20111212
  7. LOPERAMIDE [Concomitant]
  8. CLARITHROMYCIN [Concomitant]
  9. SULFASALAZINE [Concomitant]
  10. BECONASE [Concomitant]

REACTIONS (1)
  - PSYCHOTIC DISORDER [None]
